FAERS Safety Report 9024587 (Version 3)
Quarter: 2014Q2

REPORT INFORMATION
  Report Type: Spontaneous
  Country: US (occurrence: US)
  Receive Date: 20130121
  Receipt Date: 20140403
  Transmission Date: 20141212
  Serious: No
  Sender: FDA-Public Use
  Company Number: US-009507513-1301USA006225

PATIENT
  Age: 78 Year
  Sex: Male

DRUGS (4)
  1. DULERA [Suspect]
     Indication: CHRONIC OBSTRUCTIVE PULMONARY DISEASE
     Dosage: ONE INHALATION, QD
     Route: 055
     Dates: start: 20121206
  2. DULERA [Suspect]
     Dosage: 100/5 MCG / ^1 PUFF TWICE A DAY^
     Route: 055
     Dates: start: 201209
  3. PROSCAR [Concomitant]
     Route: 048
  4. METOPROLOL [Concomitant]

REACTIONS (4)
  - Dyspnoea [Not Recovered/Not Resolved]
  - Drug dose omission [Unknown]
  - Product quality issue [Unknown]
  - No adverse event [Unknown]
